FAERS Safety Report 4959040-6 (Version None)
Quarter: 2006Q1

REPORT INFORMATION
  Report Type: 
  Country: None (occurrence: None)
  Receive Date: 20060331
  Receipt Date: 20060320
  Transmission Date: 20060701
  Serious: Yes (Other)
  Sender: FDA-Public Use
  Company Number: US-BRISTOL-MYERS SQUIBB COMPANY-13321013

PATIENT
  Age: 51 Year
  Sex: Male

DRUGS (1)
  1. COUMADIN [Suspect]
     Indication: PULMONARY EMBOLISM
     Dates: start: 20060101

REACTIONS (2)
  - DIARRHOEA [None]
  - WEIGHT DECREASED [None]
